FAERS Safety Report 6837968-X (Version None)
Quarter: 2010Q3

REPORT INFORMATION
  Report Type: 
  Country: None (occurrence: None)
  Receive Date: 20100713
  Receipt Date: 20070430
  Transmission Date: 20110219
  Serious: No
  Sender: FDA-Public Use
  Company Number: US-PFIZER INC-2007035045

PATIENT
  Sex: Female
  Weight: 88.636 kg

DRUGS (14)
  1. CHANTIX [Suspect]
     Indication: SMOKING CESSATION THERAPY
     Dates: start: 20070423
  2. NEXIUM [Concomitant]
  3. COREG [Concomitant]
  4. ZOFRAN [Concomitant]
  5. WELLBUTRIN [Concomitant]
  6. LYRICA [Concomitant]
  7. CYMBALTA [Concomitant]
  8. PLAVIX [Concomitant]
  9. ASPIRINE [Concomitant]
  10. AVANDIA [Concomitant]
  11. HUMALOG [Concomitant]
  12. LANTUS [Concomitant]
  13. VOLTAREN [Concomitant]
  14. SYNTHROID [Concomitant]

REACTIONS (1)
  - HEADACHE [None]
